FAERS Safety Report 23421491 (Version 1)
Quarter: 2024Q1

REPORT INFORMATION
  Report Type: Spontaneous
  Country: US (occurrence: US)
  Receive Date: 20240119
  Receipt Date: 20240119
  Transmission Date: 20240410
  Serious: Yes (Life-Threatening, Hospitalization, Other)
  Sender: FDA-Public Use
  Company Number: US-PFIZER INC-PV202400006653

PATIENT
  Age: 2 Month
  Sex: Male
  Weight: 5.578 kg

DRUGS (2)
  1. PENICILLIN G POTASSIUM [Suspect]
     Active Substance: PENICILLIN G POTASSIUM
     Indication: Herpes simplex
     Dosage: UNK
     Route: 042
  2. ACYCLOVIR [Concomitant]
     Active Substance: ACYCLOVIR
     Indication: Herpes simplex
     Dosage: UNK

REACTIONS (2)
  - Off label use [Recovering/Resolving]
  - Jarisch-Herxheimer reaction [Recovering/Resolving]
